FAERS Safety Report 6079110-1 (Version None)
Quarter: 2009Q1

REPORT INFORMATION
  Report Type: 
  Country: None (occurrence: None)
  Receive Date: 20090216
  Receipt Date: 20090206
  Transmission Date: 20090719
  Serious: Yes (Death, Hospitalization)
  Sender: FDA-Public Use
  Company Number: A0724579A

PATIENT
  Age: 55 Year
  Sex: Male
  Weight: 110 kg

DRUGS (15)
  1. AVANDIA [Suspect]
     Dosage: 8MG PER DAY
     Route: 048
     Dates: start: 20010101, end: 20060408
  2. METOPROLOL TARTRATE [Concomitant]
  3. GEMFIBROZIL [Concomitant]
  4. KDUR [Concomitant]
  5. CARDURA [Concomitant]
  6. LOTREL [Concomitant]
  7. ZAROXOLYN [Concomitant]
  8. PLENDIL [Concomitant]
  9. LASIX [Concomitant]
  10. LIPITOR [Concomitant]
  11. LOPID [Concomitant]
  12. ALTACE [Concomitant]
  13. NEURONTIN [Concomitant]
  14. TOPROL-XL [Concomitant]
  15. DOXAZOSIN MESYLATE [Concomitant]

REACTIONS (4)
  - CARDIAC FAILURE CONGESTIVE [None]
  - CARDIAC HYPERTROPHY [None]
  - HYPERTENSIVE HEART DISEASE [None]
  - MYOCARDIAL INFARCTION [None]
